FAERS Safety Report 6066148-3 (Version None)
Quarter: 2009Q1

REPORT INFORMATION
  Report Type: 
  Country: None (occurrence: None)
  Receive Date: 20090205
  Receipt Date: 20090202
  Transmission Date: 20090719
  Serious: Yes (Life-Threatening)
  Sender: FDA-Public Use
  Company Number: JP-ASTRAZENECA-2009AP00777

PATIENT
  Age: 62 Year
  Sex: Male

DRUGS (6)
  1. OMEPRAL [Suspect]
     Indication: REFLUX OESOPHAGITIS
     Route: 048
     Dates: start: 20081205, end: 20090101
  2. DIOVAN [Concomitant]
     Route: 048
     Dates: start: 20081203, end: 20090101
  3. CALBLOCK [Concomitant]
     Route: 048
     Dates: start: 20081203, end: 20090101
  4. MUCOSTA [Concomitant]
     Dosage: DOSE UNKNOWN
     Route: 048
     Dates: start: 20081203, end: 20090101
  5. PHENOBARBITAL TAB [Concomitant]
     Route: 048
     Dates: start: 20081203, end: 20090101
  6. MEILAX [Concomitant]
     Route: 048
     Dates: start: 20081203, end: 20090101

REACTIONS (2)
  - DRUG RASH WITH EOSINOPHILIA AND SYSTEMIC SYMPTOMS [None]
  - LIVER DISORDER [None]
